FAERS Safety Report 8495005-8 (Version None)
Quarter: 2012Q3

REPORT INFORMATION
  Report Type: 
  Country: None (occurrence: None)
  Receive Date: 20120709
  Receipt Date: 20120629
  Transmission Date: 20120928
  Serious: Yes (Life-Threatening, Hospitalization)
  Sender: FDA-Public Use
  Company Number: US-JNJFOC-20120512367

PATIENT
  Sex: Female
  Weight: 61 kg

DRUGS (2)
  1. INFLIXIMAB, RECOMBINANT [Suspect]
     Indication: PSORIASIS
     Route: 042
     Dates: start: 20070101
  2. INFLIXIMAB, RECOMBINANT [Suspect]
     Route: 042
     Dates: start: 20120323

REACTIONS (4)
  - POST PROCEDURAL HAEMATOMA [None]
  - PNEUMONIA [None]
  - PULMONARY EMBOLISM [None]
  - LARYNGEAL OEDEMA [None]
